FAERS Safety Report 7690760-9 (Version None)
Quarter: 2011Q3

REPORT INFORMATION
  Report Type: 
  Country: None (occurrence: None)
  Receive Date: 20110818
  Receipt Date: 20110808
  Transmission Date: 20111222
  Serious: Yes (Hospitalization)
  Sender: FDA-Public Use
  Company Number: CA-NAPPMUNDI-DEU-2011-0007670

PATIENT
  Age: 47 Year
  Sex: Female
  Weight: 63.6 kg

DRUGS (18)
  1. KETOROLAC TROMETHAMINE [Suspect]
     Indication: GENERAL ANAESTHESIA
     Dosage: 30 MG, SINGLE
     Route: 042
  2. OXYGEN [Concomitant]
     Indication: GENERAL ANAESTHESIA
     Dosage: UNK, SEE TEXT
  3. HYDROMORPHONE HCL [Suspect]
     Indication: GENERAL ANAESTHESIA
     Dosage: 1 MG, SINGLE
     Route: 042
  4. PROPOFOL [Suspect]
     Indication: GENERAL ANAESTHESIA
     Dosage: 200 MG, SINGLE
     Route: 042
  5. NORGESTREL [Concomitant]
  6. MULTI-VITAMINS [Concomitant]
  7. DESFLURANE [Concomitant]
     Dosage: UNK, SEE TEXT
  8. MIDAZOLAM HCL [Concomitant]
     Indication: GENERAL ANAESTHESIA
     Dosage: 2 MG, SINGLE
     Route: 042
  9. FLUOXETINE [Concomitant]
  10. SUMATRIPTAN SUCCINATE [Concomitant]
  11. FENTANYL [Suspect]
     Indication: GENERAL ANAESTHESIA
     Dosage: 100 A?G, SINGLE
     Route: 042
  12. GLYCOPYRROLATE                     /00196202/ [Concomitant]
     Indication: NEUROMUSCULAR BLOCKADE
     Dosage: 0.4 MG, SINGLE
     Route: 042
  13. ROCURONIUM BROMIDE [Suspect]
     Indication: GENERAL ANAESTHESIA
     Dosage: UNK, SINGLE
     Route: 042
  14. ETHINYL ESTRADIOL [Concomitant]
  15. PROSTIGMIN BROMIDE [Concomitant]
     Indication: NEUROMUSCULAR BLOCKADE
     Dosage: 3 MG, SINGLE
     Route: 042
  16. DEXAMETHASONE [Suspect]
     Indication: GENERAL ANAESTHESIA
     Dosage: 4 MG, SINGLE
     Route: 042
  17. CALCIUM CARBONATE [Concomitant]
  18. LIDOCAINE [Suspect]
     Indication: GENERAL ANAESTHESIA
     Dosage: 60 MG, SINGLE
     Route: 042

REACTIONS (2)
  - PULMONARY OEDEMA [None]
  - STRESS CARDIOMYOPATHY [None]
